FAERS Safety Report 9148763 (Version 2)
Quarter: 2013Q3

REPORT INFORMATION
  Report Type: Spontaneous
  Country: DE (occurrence: None)
  Receive Date: 20130221
  Receipt Date: 20130715
  Transmission Date: 20140515
  Serious: Yes (Death)
  Sender: FDA-Public Use
  Company Number: DE-JNJFOC-20130207855

PATIENT
  Age: 81 Year
  Sex: Male

DRUGS (2)
  1. DACOGEN [Suspect]
     Indication: ACUTE MYELOID LEUKAEMIA
     Route: 042
  2. HYDROXYUREA (HYDROXYCARBAMIDE) UNSPECIFIED [Concomitant]

REACTIONS (7)
  - Multi-organ failure [None]
  - Sepsis [None]
  - Treatment failure [None]
  - Haemoglobin decreased [None]
  - White blood cell count decreased [None]
  - Platelet count decreased [None]
  - Acquired gene mutation [None]
